FAERS Safety Report 5535254-1 (Version None)
Quarter: 2007Q4

REPORT INFORMATION
  Report Type: 
  Country: None (occurrence: None)
  Receive Date: 20071206
  Receipt Date: 20071127
  Transmission Date: 20080405
  Serious: Yes (Life-Threatening, Hospitalization, Other)
  Sender: FDA-Public Use
  Company Number: GB-JNJFOC-20070301859

PATIENT
  Age: 77 Year
  Sex: Male
  Weight: 85 kg

DRUGS (11)
  1. ABCIXIMAB [Suspect]
     Indication: SURGERY
  2. ASPIRIN [Concomitant]
     Indication: BLOOD PRESSURE INCREASED
     Route: 048
  3. ASPIRIN [Concomitant]
     Indication: ATRIAL FIBRILLATION
     Route: 048
  4. BENDROFLUAZIDE [Concomitant]
     Indication: BLOOD PRESSURE INCREASED
     Route: 048
  5. BENDROFLUAZIDE [Concomitant]
     Indication: ATRIAL FIBRILLATION
     Route: 048
  6. DIGOXIN [Concomitant]
     Indication: BLOOD PRESSURE INCREASED
     Route: 048
  7. DIGOXIN [Concomitant]
     Indication: ATRIAL FIBRILLATION
     Route: 048
  8. DOXAZOSIN MESYLATE [Concomitant]
     Indication: BLOOD PRESSURE INCREASED
     Route: 048
  9. DOXAZOSIN MESYLATE [Concomitant]
     Indication: ATRIAL FIBRILLATION
     Route: 048
  10. ENALAPRIL [Concomitant]
     Indication: BLOOD PRESSURE INCREASED
     Route: 048
  11. ENALAPRIL [Concomitant]
     Indication: ATRIAL FIBRILLATION
     Route: 048

REACTIONS (4)
  - ANAEMIA [None]
  - CONTUSION [None]
  - EPISTAXIS [None]
  - THROMBOCYTOPENIA [None]
